FAERS Safety Report 23492565 (Version 1)
Quarter: 2024Q1

REPORT INFORMATION
  Report Type: Spontaneous
  Country: GB (occurrence: GB)
  Receive Date: 20240207
  Receipt Date: 20240207
  Transmission Date: 20240410
  Serious: No
  Sender: FDA-Public Use
  Company Number: None

PATIENT
  Age: 73 Year
  Sex: Male
  Weight: 72 kg

DRUGS (15)
  1. EZETIMIBE [Suspect]
     Active Substance: EZETIMIBE
     Indication: Product used for unknown indication
     Dosage: 10 MILLIGRAM, QD (TABLET) (PER DAY)
     Route: 065
     Dates: start: 20230913
  2. ADIZEM [Concomitant]
     Active Substance: DILTIAZEM HYDROCHLORIDE
     Indication: Product used for unknown indication
     Dosage: 1 DOSAGE FORM, QD (PER DAY) (MORNING)
     Route: 065
     Dates: start: 20230503
  3. AMILORIDE HYDROCHLORIDE [Concomitant]
     Active Substance: AMILORIDE HYDROCHLORIDE
     Indication: Product used for unknown indication
     Dosage: 2 DOSAGE FORM, QD (PER DAY) (MORNING)
     Route: 065
     Dates: start: 20230503
  4. ASPIRIN [Concomitant]
     Active Substance: ASPIRIN
     Indication: Product used for unknown indication
     Dosage: 1 DOSAGE FORM, QD (PER DAY) (FOR LIFE)
     Route: 065
     Dates: start: 20230503
  5. CLARITHROMYCIN [Concomitant]
     Active Substance: CLARITHROMYCIN
     Indication: Product used for unknown indication
     Dosage: 2 DOSAGE FORM, QD (PER DAY)
     Route: 065
     Dates: start: 20220929
  6. CODEINE PHOSPHATE [Concomitant]
     Active Substance: CODEINE PHOSPHATE
     Indication: Pain
     Dosage: UNK, QD (4 DOSE) (1-2) (PER DAY)
     Route: 065
     Dates: start: 20220929
  7. DOXYCYCLINE [Concomitant]
     Active Substance: DOXYCYCLINE
     Indication: Product used for unknown indication
     Dosage: 2 DOSAGE FORM, QD (NOW THEN ONE DAILY)
     Route: 065
     Dates: start: 20230726, end: 20230802
  8. POTASSIUM BICARBONATE\SODIUM ALGINATE [Concomitant]
     Active Substance: POTASSIUM BICARBONATE\SODIUM ALGINATE
     Indication: Product used for unknown indication
     Dosage: UNK (SPOONFUL) (ONE OR TWO 5ML TO BE TAKEN AFTER MEAL...)
     Route: 065
     Dates: start: 20220929
  9. NITROGLYCERIN [Concomitant]
     Active Substance: NITROGLYCERIN
     Indication: Product used for unknown indication
     Dosage: 2 DOSAGE FORM, PRN (AS NECESSARY) (SPRAY AS DIRECTED)
     Route: 065
     Dates: start: 20230405
  10. MONTELUKAST [Concomitant]
     Active Substance: MONTELUKAST SODIUM
     Indication: Product used for unknown indication
     Dosage: 1 DOSAGE FORM, HS (NIGHT) (PER DAY)
     Route: 065
     Dates: start: 20230607
  11. OMEPRAZOLE [Concomitant]
     Active Substance: OMEPRAZOLE
     Indication: Product used for unknown indication
     Dosage: 1 DOSAGE FORM, QD (PER DAY) (WHILST ON DAPT)
     Route: 065
     Dates: start: 20230503
  12. PREDNISOLONE [Concomitant]
     Active Substance: PREDNISOLONE
     Indication: Product used for unknown indication
     Dosage: 6 DOSAGE FORM, QD (PER DAY) (FOR 5 DAYS - RESCUE MEDS)
     Route: 065
     Dates: start: 20230328
  13. ROSUVASTATIN [Concomitant]
     Active Substance: ROSUVASTATIN
     Indication: Product used for unknown indication
     Dosage: 1 DOSAGE FORM (ON ALTERNATE DAYS)
     Route: 065
     Dates: start: 20230503
  14. ALBUTEROL [Concomitant]
     Active Substance: ALBUTEROL
     Indication: Product used for unknown indication
     Dosage: UNK, QD (4 DOSE) (ONE OR TWO PUFFS) (PER DAY)
     Dates: start: 20230503
  15. BECLOMETHASONE DIPROPIONATE\FORMOTEROL FUMARATE\GLYCOPYRROLATE [Concomitant]
     Active Substance: BECLOMETHASONE DIPROPIONATE\FORMOTEROL FUMARATE\GLYCOPYRROLATE
     Indication: Product used for unknown indication
     Dosage: 4 DOSAGE FORM, QD (PER DAY) PUFFS (PLEASE RETURN YOUR EMPTY...)
     Dates: start: 20230607

REACTIONS (3)
  - Memory impairment [Unknown]
  - Abdominal distension [Unknown]
  - Depression [Recovering/Resolving]

NARRATIVE: CASE EVENT DATE: 20230920
